FAERS Safety Report 24723114 (Version 1)
Quarter: 2024Q4

REPORT INFORMATION
  Report Type: Spontaneous
  Country: DE (occurrence: DE)
  Receive Date: 20241211
  Receipt Date: 20241211
  Transmission Date: 20250114
  Serious: Yes (Hospitalization)
  Sender: FRESENIUS KABI
  Company Number: DE-ROCHE-10000147573

PATIENT
  Age: 57 Year
  Sex: Male
  Weight: 84 kg

DRUGS (5)
  1. LEUCOVORIN [Suspect]
     Active Substance: LEUCOVORIN\LEUCOVORIN CALCIUM
     Indication: Gastrooesophageal cancer
     Dosage: LAST DOSE GIVEN BEFORE ONSET OF AE ON 29/NOV/2024
     Route: 065
     Dates: start: 20241018
  2. OXALIPLATIN [Suspect]
     Active Substance: OXALIPLATIN
     Indication: Gastrooesophageal cancer
     Dosage: LAST DOSE GIVEN BEFORE ONSET OF AE ON 29/NOV/2024
     Route: 065
     Dates: start: 20241018
  3. ATEZOLIZUMAB [Suspect]
     Active Substance: ATEZOLIZUMAB
     Indication: Gastrooesophageal cancer
     Dosage: LAST DOSE GIVEN BEFORE ONSET OF AE ON 01/NOV/2024
     Route: 065
     Dates: start: 20241018
  4. DOCETAXEL [Suspect]
     Active Substance: DOCETAXEL
     Indication: Gastrooesophageal cancer
     Dosage: LAST DOSE GIVEN BEFORE ONSET OF AE ON 29/NOV/2024
     Route: 065
     Dates: start: 20241018
  5. FLUOROURACIL [Suspect]
     Active Substance: FLUOROURACIL
     Indication: Gastrooesophageal cancer
     Dosage: LAST DOSE GIVEN BEFORE ONSET OF AE ON 29/NOV/2024
     Route: 065
     Dates: start: 20241018

REACTIONS (1)
  - Pyrexia [Recovered/Resolved]

NARRATIVE: CASE EVENT DATE: 20241129
